FAERS Safety Report 14001050 (Version 2)
Quarter: 2017Q4

REPORT INFORMATION
  Report Type: Spontaneous
  Country: US (occurrence: US)
  Receive Date: 20170922
  Receipt Date: 20171010
  Transmission Date: 20180321
  Serious: No
  Sender: FDA-Public Use
  Company Number: US-INCYTE CORPORATION-2017IN007882

PATIENT

DRUGS (1)
  1. JAKAFI [Suspect]
     Active Substance: RUXOLITINIB
     Indication: MYELOFIBROSIS
     Dosage: 5 MG, BID
     Route: 048
     Dates: start: 20170830, end: 201709

REACTIONS (5)
  - Decreased appetite [Unknown]
  - Condition aggravated [Unknown]
  - Nausea [Unknown]
  - Rash generalised [Unknown]
  - Asthenia [Unknown]

NARRATIVE: CASE EVENT DATE: 20170910
